FAERS Safety Report 9998245 (Version 2)
Quarter: 2014Q1

REPORT INFORMATION
  Report Type: Spontaneous
  Country: US (occurrence: US)
  Receive Date: 20140311
  Receipt Date: 20140311
  Transmission Date: 20141002
  Serious: Yes (Disabling)
  Sender: FDA-Public Use
  Company Number: US-GE HEALTHCARE MEDICAL DIAGNOSTICS-OSCN-PR-0805S-0245

PATIENT
  Age: 46 Year
  Sex: Male

DRUGS (6)
  1. OMNISCAN [Suspect]
     Indication: PRODUCT USED FOR UNKNOWN INDICATION
     Route: 042
     Dates: start: 20011005, end: 20011005
  2. OMNISCAN [Suspect]
     Indication: PRODUCT USED FOR UNKNOWN INDICATION
     Route: 042
     Dates: start: 20020307, end: 20020307
  3. OMNISCAN [Suspect]
     Indication: PRODUCT USED FOR UNKNOWN INDICATION
     Route: 042
     Dates: start: 20020816, end: 20020816
  4. GADOLINIUM (UNSPECIFIED) [Suspect]
     Indication: PRODUCT USED FOR UNKNOWN INDICATION
     Route: 042
     Dates: start: 19990714, end: 19990714
  5. PROHANCE [Suspect]
     Indication: PRODUCT USED FOR UNKNOWN INDICATION
     Route: 042
     Dates: start: 19950501, end: 19950501
  6. MAGNEVIST [Suspect]
     Indication: PRODUCT USED FOR UNKNOWN INDICATION
     Route: 042
     Dates: start: 19921130, end: 19921130

REACTIONS (1)
  - Nephrogenic systemic fibrosis [Not Recovered/Not Resolved]
